FAERS Safety Report 8769704 (Version 5)
Quarter: 2014Q3

REPORT INFORMATION
  Report Type: Spontaneous
  Country: US (occurrence: US)
  Receive Date: 20120905
  Receipt Date: 20140725
  Transmission Date: 20150326
  Serious: Yes (Hospitalization, Disabling, Other)
  Sender: FDA-Public Use
  Company Number: US-009507513-1208USA012646

PATIENT
  Sex: Female
  Weight: 86.17 kg

DRUGS (3)
  1. ADDERALL [Suspect]
     Active Substance: AMPHETAMINE ASPARTATE\AMPHETAMINE SULFATE\DEXTROAMPHETAMINE SACCHARATE\DEXTROAMPHETAMINE SULFATE
     Indication: ATTENTION DEFICIT/HYPERACTIVITY DISORDER
  2. NUVARING [Suspect]
     Active Substance: ETHINYL ESTRADIOL\ETONOGESTREL
     Dosage: .120/015 AS DIRECTED
     Route: 067
     Dates: start: 200608, end: 200909
  3. NUVARING [Suspect]
     Active Substance: ETHINYL ESTRADIOL\ETONOGESTREL
     Indication: CONTRACEPTION
     Dosage: .120/015 AS DIRECTED
     Route: 067
     Dates: start: 200608, end: 200909

REACTIONS (7)
  - Pulmonary embolism [Unknown]
  - Lymphadenopathy [Unknown]
  - Lung infection [Recovered/Resolved]
  - Abdominal hernia [Unknown]
  - Deep vein thrombosis [Unknown]
  - Gastrooesophageal reflux disease [Unknown]
  - Cough [Unknown]

NARRATIVE: CASE EVENT DATE: 200803
